FAERS Safety Report 10283635 (Version 2)
Quarter: 2014Q3

REPORT INFORMATION
  Report Type: Report from Study
  Country: NZ (occurrence: NZ)
  Receive Date: 20140708
  Receipt Date: 20140718
  Transmission Date: 20150326
  Serious: Yes (Hospitalization)
  Sender: FDA-Public Use
  Company Number: NZ-SA-2014SA086734

PATIENT
  Age: 85 Year
  Sex: Female

DRUGS (3)
  1. HUMALOG [Concomitant]
     Active Substance: INSULIN LISPRO
  2. LANTUS [Suspect]
     Active Substance: INSULIN GLARGINE
     Dosage: 10UNITS MIDDAY AND 2-4 UNITS EVENING
     Route: 065
     Dates: start: 20070115
  3. CLIKSTAR [Suspect]
     Active Substance: CLIKSTAR
     Indication: DEVICE THERAPY

REACTIONS (6)
  - Drug administration error [Unknown]
  - Herpes zoster [Recovering/Resolving]
  - Migraine [Recovering/Resolving]
  - Blood glucose increased [Recovering/Resolving]
  - Transient ischaemic attack [Recovering/Resolving]
  - Aphagia [Unknown]

NARRATIVE: CASE EVENT DATE: 20070615
